FAERS Safety Report 26095670 (Version 2)
Quarter: 2025Q4

REPORT INFORMATION
  Report Type: Spontaneous
  Country: US (occurrence: US)
  Receive Date: 20251127
  Receipt Date: 20251209
  Transmission Date: 20260118
  Serious: No
  Sender: LEO PHARM
  Company Number: US-LEO Pharma-384423

PATIENT
  Age: 79 Year
  Sex: Female

DRUGS (2)
  1. ADBRY [Suspect]
     Active Substance: TRALOKINUMAB-LDRM
     Indication: Neurodermatitis
     Dosage: TREATMENT ONGOING
     Dates: start: 20250815
  2. ADBRY [Suspect]
     Active Substance: TRALOKINUMAB-LDRM
     Indication: Dermatitis atopic
     Dosage: TREATMENT ONGOING
     Dates: start: 20250815

REACTIONS (5)
  - Renal cyst [Unknown]
  - Hepatic lesion [Unknown]
  - Pruritus [Unknown]
  - Adverse event [Unknown]
  - Drug ineffective [Unknown]
